FAERS Safety Report 21747291 (Version 1)
Quarter: 2022Q4

REPORT INFORMATION
  Report Type: Spontaneous
  Country: FR (occurrence: FR)
  Receive Date: 20221219
  Receipt Date: 20221219
  Transmission Date: 20230112
  Serious: Yes (Hospitalization)
  Sender: FDA-Public Use
  Company Number: None

PATIENT
  Age: 88 Year
  Sex: Female

DRUGS (2)
  1. RAMIPRIL [Suspect]
     Active Substance: RAMIPRIL
     Indication: Chordoma
     Dates: start: 20220705
  2. PAZOPANIB [Suspect]
     Active Substance: PAZOPANIB
     Indication: Chordoma
     Dates: start: 20220920, end: 20221016

REACTIONS (2)
  - Hepatic cytolysis [Recovered/Resolved]
  - Pancreatitis acute [Recovered/Resolved]

NARRATIVE: CASE EVENT DATE: 20221014
